FAERS Safety Report 7421452-9 (Version None)
Quarter: 2011Q2

REPORT INFORMATION
  Report Type: 
  Country: None (occurrence: None)
  Receive Date: 20110418
  Receipt Date: 20110407
  Transmission Date: 20111010
  Serious: Yes (Other)
  Sender: FDA-Public Use
  Company Number: US-ASTRAZENECA-2010SE43000

PATIENT
  Age: 48 Year
  Sex: Female

DRUGS (3)
  1. RHINOCORT [Suspect]
     Route: 045
  2. NEXIUM [Suspect]
     Route: 048
  3. TOPROL-XL [Suspect]
     Route: 048

REACTIONS (3)
  - UTERINE LEIOMYOMA [None]
  - HYPERTENSION [None]
  - DIABETES MELLITUS [None]
